FAERS Safety Report 23112299 (Version 2)
Quarter: 2023Q4

REPORT INFORMATION
  Report Type: Other
  Country: US (occurrence: US)
  Receive Date: 20231026
  Receipt Date: 20231102
  Transmission Date: 20240109
  Serious: Yes (Other)
  Sender: FDA-Public Use
  Company Number: US-ALVOGEN-2023092433

PATIENT
  Age: 26 Year
  Sex: Female

DRUGS (5)
  1. LEVOTHYROXINE [Suspect]
     Active Substance: LEVOTHYROXINE
     Indication: Autoimmune thyroiditis
     Dosage: 25 MCG
  2. LEVOTHYROXINE [Suspect]
     Active Substance: LEVOTHYROXINE
     Indication: Autoimmune thyroiditis
     Dosage: 300 MCG FOR ONE AND A HALF MONTHS?WAS ACCIDENTALLY OVERPRESCRIBED LT
  3. LEVOTHYROXINE [Suspect]
     Active Substance: LEVOTHYROXINE
     Indication: Autoimmune thyroiditis
     Dosage: TWO MONTHS AFTER THE THYROTOXICOSIS INCIDENT, TO CONTINUE?TAKING 25 MCG OF LT
  4. BUPROPION [Concomitant]
     Active Substance: BUPROPION
     Indication: Product used for unknown indication
  5. ESCITALOPRAM [Concomitant]
     Active Substance: ESCITALOPRAM OXALATE
     Indication: Product used for unknown indication
     Dosage: EVERYDAY

REACTIONS (11)
  - Suicidal ideation [Unknown]
  - Hyperthyroidism [Unknown]
  - Product prescribing error [Unknown]
  - Depression [Recovering/Resolving]
  - Anxiety [Recovering/Resolving]
  - Orthostatic hypotension [Unknown]
  - Lethargy [Unknown]
  - Palpitations [Unknown]
  - Body temperature abnormal [Unknown]
  - Tremor [Unknown]
  - Diarrhoea [Unknown]
